FAERS Safety Report 5327960-9 (Version None)
Quarter: 2007Q2

REPORT INFORMATION
  Report Type: 
  Country: None (occurrence: None)
  Receive Date: 20070517
  Receipt Date: 20070507
  Transmission Date: 20071010
  Serious: Yes (Other)
  Sender: FDA-Public Use
  Company Number: US-PFIZER INC-2007037138

PATIENT
  Sex: Female

DRUGS (6)
  1. REVATIO [Suspect]
     Indication: PULMONARY HYPERTENSION
  2. CHANTIX [Suspect]
  3. MIACALCIN [Suspect]
  4. FUROSEMIDE [Concomitant]
  5. LORAZEPAM [Concomitant]
  6. CALCITONIN-SALMON [Concomitant]

REACTIONS (2)
  - MUSCLE ATROPHY [None]
  - RESTLESS LEGS SYNDROME [None]
